FAERS Safety Report 5277328-9 (Version None)
Quarter: 2007Q1

REPORT INFORMATION
  Report Type: 
  Country: None (occurrence: None)
  Receive Date: 20070327
  Receipt Date: 20070320
  Transmission Date: 20070707
  Serious: Yes (Life-Threatening, Hospitalization, Disabling, Other)
  Sender: FDA-Public Use
  Company Number: US-MERCK-0703USA03900

PATIENT
  Age: 90 Year
  Sex: Female

DRUGS (3)
  1. FOSAMAX [Suspect]
     Indication: OSTEOPOROSIS
     Route: 048
  2. ATENOLOL [Concomitant]
     Route: 065
  3. AVANDIA [Concomitant]
     Route: 065

REACTIONS (1)
  - HIP FRACTURE [None]
